FAERS Safety Report 6570687-6 (Version None)
Quarter: 2010Q1

REPORT INFORMATION
  Report Type: 
  Country: None (occurrence: None)
  Receive Date: 20100204
  Receipt Date: 20100201
  Transmission Date: 20100710
  Serious: Yes (Other)
  Sender: FDA-Public Use
  Company Number: A0842357A

PATIENT
  Age: 31 Year
  Sex: Female

DRUGS (2)
  1. LAMICTAL [Suspect]
     Indication: ANXIETY
     Dosage: 600MG PER DAY
     Route: 048
  2. VITAMINS [Concomitant]

REACTIONS (2)
  - ACCIDENTAL OVERDOSE [None]
  - RASH PRURITIC [None]
